FAERS Safety Report 7842994-8 (Version None)
Quarter: 2011Q4

REPORT INFORMATION
  Report Type: 
  Country: None (occurrence: None)
  Receive Date: 20111025
  Receipt Date: 20111014
  Transmission Date: 20120403
  Serious: Yes (Other)
  Sender: FDA-Public Use
  Company Number: US-NOVOPROD-337329

PATIENT

DRUGS (26)
  1. CRESTOR [Concomitant]
     Indication: BLOOD CHOLESTEROL INCREASED
     Dosage: UNK, QD
  2. CALCIUM CARBONATE [Concomitant]
     Indication: PRODUCT USED FOR UNKNOWN INDICATION
  3. KLOR-CON [Concomitant]
     Indication: MINERAL SUPPLEMENTATION
  4. PRISTIQ [Concomitant]
     Indication: DEPRESSION
  5. NITROSTAT [Concomitant]
     Indication: ANGINA PECTORIS
     Dosage: UNK, PRN
  6. CINNAMON [Concomitant]
     Indication: PRODUCT USED FOR UNKNOWN INDICATION
  7. IRON [Concomitant]
     Indication: ANAEMIA
  8. ESTRACE [Concomitant]
     Indication: HORMONE REPLACEMENT THERAPY
  9. OMEGA 3                            /00931501/ [Concomitant]
     Indication: PRODUCT USED FOR UNKNOWN INDICATION
  10. VICTOZA [Suspect]
     Indication: TYPE 2 DIABETES MELLITUS
     Dosage: 0.6 MG, QD
     Route: 058
     Dates: start: 20110824, end: 20110829
  11. METFORMIN HCL [Concomitant]
     Indication: TYPE 2 DIABETES MELLITUS
     Dosage: UNK, BID
  12. TORADOL [Concomitant]
     Indication: MIGRAINE
     Dosage: UNK, PRN
  13. ADVAIR DISKUS 100/50 [Concomitant]
     Indication: ASTHMA
  14. CRANBERRY                          /01512301/ [Concomitant]
     Indication: PRODUCT USED FOR UNKNOWN INDICATION
  15. LASIX [Concomitant]
     Indication: CARDIAC FAILURE CONGESTIVE
     Dosage: UNK, PRN
  16. ASPIRIN [Concomitant]
     Indication: PRODUCT USED FOR UNKNOWN INDICATION
     Dosage: 325 MG, QD
  17. COQ10 [Concomitant]
     Indication: PRODUCT USED FOR UNKNOWN INDICATION
  18. SINGULAIR [Concomitant]
     Indication: RHINITIS ALLERGIC
  19. ZYRTEC [Concomitant]
     Indication: RHINITIS ALLERGIC
     Dosage: UNK, PRN
  20. ALLEGRA D 24 HOUR [Concomitant]
     Indication: RHINITIS ALLERGIC
     Dosage: UNK, PRN
  21. VICTOZA [Suspect]
     Dosage: 1.8 MG, QD
     Route: 058
     Dates: start: 20110830, end: 20110830
  22. CARVEDILOL [Concomitant]
     Indication: HYPERTENSION
     Dosage: UNK, BID
  23. DIOVAN HCT [Concomitant]
     Indication: HYPERTENSION
  24. CLARINEX                           /01202601/ [Concomitant]
     Indication: RHINITIS ALLERGIC
  25. FLOVENT [Concomitant]
     Indication: ASTHMA
  26. MULTIVITAMIN                       /00097801/ [Concomitant]
     Indication: PRODUCT USED FOR UNKNOWN INDICATION

REACTIONS (5)
  - CHOLECYSTITIS [None]
  - NIGHT SWEATS [None]
  - CHOLELITHIASIS [None]
  - OEDEMA PERIPHERAL [None]
  - ABDOMINAL DISTENSION [None]
